FAERS Safety Report 8937195 (Version 1)
Quarter: 2013Q1

REPORT INFORMATION
  Report Type: Spontaneous
  Country: US (occurrence: None)
  Receive Date: 20121128
  Receipt Date: 20121128
  Transmission Date: 20140127
  Serious: Yes (Hospitalization)
  Sender: FDA-Public Use
  Company Number: None

PATIENT
  Age: 89 Year
  Sex: Female

DRUGS (14)
  1. BACTRIM DS [Suspect]
     Indication: URINARY TRACT INFECTION
     Dosage: RECENT
     Route: 048
  2. VALIUM [Suspect]
     Dosage: CHRONIC
     Route: 048
  3. DEMEROL [Suspect]
     Indication: BACK PAIN
  4. VALIUM [Concomitant]
  5. PRILOSEC [Concomitant]
  6. CALTRATE [Concomitant]
  7. LASIX [Concomitant]
  8. SYNTHROID [Concomitant]
  9. KOMBIGLYZE [Concomitant]
  10. MVI [Concomitant]
  11. ASA [Concomitant]
  12. ONDANSETRON [Concomitant]
  13. ZOLPIDEM [Concomitant]
  14. DEMEROL [Concomitant]

REACTIONS (4)
  - Mental status changes [None]
  - Asthenia [None]
  - Hyponatraemia [None]
  - Hallucinations, mixed [None]
